FAERS Safety Report 6669624-5 (Version None)
Quarter: 2010Q2

REPORT INFORMATION
  Report Type: 
  Country: None (occurrence: None)
  Receive Date: 20100406
  Receipt Date: 20100325
  Transmission Date: 20101027
  Serious: Yes (Other)
  Sender: FDA-Public Use
  Company Number: US-PFIZER INC-2008009580

PATIENT
  Sex: Male
  Weight: 84.354 kg

DRUGS (8)
  1. CHANTIX [Suspect]
     Indication: SMOKING CESSATION THERAPY
     Route: 048
     Dates: start: 20080123
  2. PAXIL [Concomitant]
     Route: 048
  3. TEGRETOL [Concomitant]
     Route: 048
  4. LIPITOR [Concomitant]
     Route: 048
  5. DOCUSATE [Concomitant]
     Route: 048
  6. TICLID [Concomitant]
     Route: 048
  7. TRAZODONE HCL [Concomitant]
     Route: 048
  8. METHADONE HCL [Concomitant]
     Route: 048

REACTIONS (7)
  - ABDOMINAL DISCOMFORT [None]
  - CEREBROVASCULAR ACCIDENT [None]
  - CONFUSIONAL STATE [None]
  - DYSGRAPHIA [None]
  - FATIGUE [None]
  - MEMORY IMPAIRMENT [None]
  - NAUSEA [None]
